FAERS Safety Report 23587732 (Version 1)
Quarter: 2024Q1

REPORT INFORMATION
  Report Type: Spontaneous
  Country: US (occurrence: US)
  Receive Date: 20240301
  Receipt Date: 20240301
  Transmission Date: 20240410
  Serious: No
  Sender: FDA-Public Use
  Company Number: US-SA-SAC20240227001246

PATIENT
  Age: 54 Year
  Sex: Male

DRUGS (2)
  1. ELOCTATE [Suspect]
     Active Substance: EFMOROCTOCOG ALFA
     Dosage: 2888 U (+/-10%), PRN
     Route: 042
  2. ELOCTATE [Suspect]
     Active Substance: EFMOROCTOCOG ALFA
     Dosage: 2888 U (+/-10%), PRN
     Route: 042

REACTIONS (2)
  - Road traffic accident [Unknown]
  - Post-traumatic pain [Unknown]

NARRATIVE: CASE EVENT DATE: 20240205
